FAERS Safety Report 9506150 (Version 1)
Quarter: 2013Q1

REPORT INFORMATION
  Report Type: Spontaneous
  Country: US (occurrence: None)
  Receive Date: 20130301
  Receipt Date: 20130301
  Transmission Date: 20140127
  Serious: Yes (Other)
  Sender: FDA-Public Use
  Company Number: PHEH2012US023454

PATIENT
  Sex: Female

DRUGS (3)
  1. TEGRETOL (CARBAMAZEPINE) UNKNOWN [Suspect]
  2. TRILEPTAL (OXCARBAZEPINE) [Concomitant]
  3. ZOLOF [Concomitant]

REACTIONS (1)
  - Hypersensitivity [None]
